FAERS Safety Report 9821919 (Version 1)
Quarter: 2014Q1

REPORT INFORMATION
  Report Type: Spontaneous
  Country: US (occurrence: US)
  Receive Date: 20140116
  Receipt Date: 20140116
  Transmission Date: 20141002
  Serious: Yes (Other)
  Sender: FDA-Public Use
  Company Number: US-BAYER-2014-006690

PATIENT
  Age: 51 Year
  Sex: Female

DRUGS (2)
  1. MAGNEVIST [Suspect]
     Indication: NUCLEAR MAGNETIC RESONANCE IMAGING
     Dosage: 18 ML, ONCE
     Route: 042
     Dates: start: 20140113, end: 20140113
  2. MAGNEVIST [Suspect]
     Indication: HEADACHE

REACTIONS (3)
  - Tension headache [Unknown]
  - Headache [Unknown]
  - Intracranial pressure increased [Unknown]
